FAERS Safety Report 7830519-2 (Version None)
Quarter: 2011Q4

REPORT INFORMATION
  Report Type: 
  Country: None (occurrence: None)
  Receive Date: 20111021
  Receipt Date: 20111013
  Transmission Date: 20120403
  Serious: Yes (Other)
  Sender: FDA-Public Use
  Company Number: US-AMGEN-USASP2011053082

PATIENT
  Age: 66 Year
  Sex: Female

DRUGS (11)
  1. ATENOLOL [Concomitant]
  2. KEFLEX [Concomitant]
  3. SENSIPAR [Suspect]
     Indication: HYPERPARATHYROIDISM SECONDARY
     Dosage: 60 MG, QD
     Dates: start: 20110526
  4. ZEMPLAR [Concomitant]
     Dosage: 6 MG, UNK
     Dates: start: 20110922
  5. ZEMPLAR [Concomitant]
     Dosage: 4 MG, UNK
  6. NORVASC [Concomitant]
  7. SENSIPAR [Suspect]
     Dosage: 60 MG, 3 TIMES/WK
     Dates: start: 20110922
  8. PREDNISONE [Concomitant]
     Dosage: UNK
  9. LIPITOR [Concomitant]
  10. COUMADIN [Concomitant]
  11. VITAL                              /00943602/ [Concomitant]

REACTIONS (1)
  - BLOOD PARATHYROID HORMONE ABNORMAL [None]
